FAERS Safety Report 15565460 (Version 1)
Quarter: 2018Q4

REPORT INFORMATION
  Report Type: Spontaneous
  Country: US (occurrence: US)
  Receive Date: 20181030
  Receipt Date: 20181030
  Transmission Date: 20190205
  Serious: Yes (Death, Other)
  Sender: FDA-Public Use
  Company Number: US-ROCHE-2206991

PATIENT
  Age: 66 Year
  Sex: Female
  Weight: 81.72 kg

DRUGS (4)
  1. BABY ASPIRIN [Concomitant]
     Active Substance: ASPIRIN
     Dosage: ONGOING: NO
     Route: 065
  2. GEMAZAR [Concomitant]
     Dosage: ONGOING: NO
     Route: 065
     Dates: start: 20180618
  3. AVASTIN [Suspect]
     Active Substance: BEVACIZUMAB
     Indication: OVARIAN CANCER RECURRENT
     Route: 065
     Dates: start: 20180618, end: 20180618
  4. CARBOPLATIN. [Concomitant]
     Active Substance: CARBOPLATIN
     Route: 065
     Dates: start: 20180618

REACTIONS (4)
  - Dyspnoea [Unknown]
  - Respiratory distress [Unknown]
  - Myocarditis [Fatal]
  - Malaise [Unknown]

NARRATIVE: CASE EVENT DATE: 20180619
